FAERS Safety Report 4928031-3 (Version None)
Quarter: 2006Q1

REPORT INFORMATION
  Report Type: 
  Country: None (occurrence: None)
  Receive Date: 20060223
  Receipt Date: 20060213
  Transmission Date: 20060701
  Serious: Yes (Hospitalization)
  Sender: FDA-Public Use
  Company Number: ZONI002268

PATIENT
  Age: 62 Year

DRUGS (4)
  1. ZONISAMIDE [Suspect]
     Indication: EPILEPSY
     Dosage: 200 MG, 2 IN 1 D, ORAL
     Route: 048
     Dates: start: 20031014, end: 20031107
  2. LOXONIN (LOXOPROFEN SODIUM) [Suspect]
     Indication: PYREXIA
     Dosage: 60 MG, AS REQUIRED, ORAL
     Route: 048
  3. ADALAT [Concomitant]
  4. TOWARAT L (NIFEDIPINE) [Concomitant]

REACTIONS (4)
  - GENERALISED ERYTHEMA [None]
  - LYMPHOCYTE STIMULATION TEST POSITIVE [None]
  - PRURITUS [None]
  - PRURITUS GENERALISED [None]
